FAERS Safety Report 5132317-X (Version None)
Quarter: 2006Q4

REPORT INFORMATION
  Report Type: 
  Country: None (occurrence: None)
  Receive Date: 20061019
  Receipt Date: 20061019
  Transmission Date: 20070319
  Serious: Yes (Hospitalization)
  Sender: FDA-Public Use
  Company Number: None

PATIENT
  Age: 36 Year
  Sex: Female

DRUGS (4)
  1. ADRIAMYCIN PFS [Suspect]
     Indication: BREAST CANCER
     Dosage: 115 MG IV Q 3 KW
     Route: 042
     Dates: start: 20041126
  2. ADRIAMYCIN PFS [Suspect]
     Indication: BREAST CANCER
     Dosage: 115 MG IV Q 3 KW
     Route: 042
     Dates: start: 20041217
  3. CYTOXAN [Suspect]
     Indication: BREAST CANCER
     Dosage: 1150 MG IV Q3 WK
     Route: 042
     Dates: start: 20041126
  4. CYTOXAN [Suspect]
     Indication: BREAST CANCER
     Dosage: 1150 MG IV Q3 WK
     Route: 042
     Dates: start: 20041217

REACTIONS (2)
  - DEHYDRATION [None]
  - NAUSEA [None]
